FAERS Safety Report 9176729 (Version 3)
Quarter: 2013Q3

REPORT INFORMATION
  Report Type: Report from Study
  Country: ES (occurrence: ES)
  Receive Date: 20130321
  Receipt Date: 20130725
  Transmission Date: 20140515
  Serious: Yes (Hospitalization)
  Sender: FDA-Public Use
  Company Number: ES-009507513-1303ESP009071

PATIENT
  Age: 60 Year
  Sex: Male
  Weight: 70 kg

DRUGS (13)
  1. DEXAMETHASONE [Suspect]
     Indication: PLASMA CELL MYELOMA
     Dosage: 20 MG, ON DAYS 1,2,4,5,8,9,11 AND12 EVERY 21 DAYS.
     Route: 048
     Dates: start: 20130218
  2. INVESTIGATIONAL DRUG (UNSPECIFIED) [Suspect]
     Indication: PLASMA CELL MYELOMA
     Dosage: UNK
     Route: 058
     Dates: start: 20130218
  3. BORTEZOMIB [Suspect]
     Indication: PLASMA CELL MYELOMA
     Dosage: 1.3 MG/M2, ON DAYS 1,4, 8, AND 11 EVERY 21 DAYS
     Route: 058
     Dates: start: 20130218
  4. ENALAPRIL MALEATE [Concomitant]
     Indication: HYPERTENSION
     Dosage: UNK
  5. EUTIROX [Concomitant]
     Indication: HYPOTHYROIDISM
     Dosage: UNK
  6. LORAZEPAM [Concomitant]
     Indication: INSOMNIA
     Dosage: UNK
  7. SERTRALINE HYDROCHLORIDE [Concomitant]
     Indication: ANXIETY
     Dosage: UNK
  8. ATORVASTATIN [Concomitant]
     Indication: DYSLIPIDAEMIA
     Dosage: UNK
  9. OMEPRAZOLE [Concomitant]
     Indication: PROPHYLAXIS AGAINST GASTROINTESTINAL ULCER
     Dosage: UNK
  10. AAS [Concomitant]
     Indication: ACUTE MYOCARDIAL INFARCTION
     Dosage: UNK
     Dates: start: 1998
  11. ACYCLOVIR [Concomitant]
     Indication: PROPHYLAXIS
     Dosage: UNK
  12. BISOPROLOL [Concomitant]
     Indication: HYPERTENSION
     Dosage: UNK
  13. ALLOPURINOL [Concomitant]
     Indication: HYPERURICAEMIA
     Dosage: UNK

REACTIONS (2)
  - Pyrexia [Recovered/Resolved]
  - Pneumococcal sepsis [Recovered/Resolved]
